FAERS Safety Report 19363986 (Version 1)
Quarter: 2021Q2

REPORT INFORMATION
  Report Type: Spontaneous
  Country: US (occurrence: US)
  Receive Date: 20210602
  Receipt Date: 20210602
  Transmission Date: 20210717
  Serious: Yes (Hospitalization)
  Sender: FDA-Public Use
  Company Number: None

PATIENT
  Age: 71 Year
  Sex: Female

DRUGS (1)
  1. PROLIA [Suspect]
     Active Substance: DENOSUMAB
     Indication: OSTEOPOROSIS
     Dosage: OTHER FREQUENCY:EVERY 6 MONTHS;?
     Route: 058
     Dates: start: 20201022

REACTIONS (3)
  - Urinary tract infection [None]
  - Coronavirus infection [None]
  - Pancreatitis [None]

NARRATIVE: CASE EVENT DATE: 20210308
